FAERS Safety Report 20513672 (Version 1)
Quarter: 2022Q1

REPORT INFORMATION
  Report Type: Spontaneous
  Country: US (occurrence: US)
  Receive Date: 20220224
  Receipt Date: 20220224
  Transmission Date: 20220423
  Serious: No
  Sender: FDA-Public Use
  Company Number: US-AMNEAL PHARMACEUTICALS-2021-AMRX-01065

PATIENT
  Age: 64 Year
  Sex: Female

DRUGS (6)
  1. RYTARY [Suspect]
     Active Substance: CARBIDOPA\LEVODOPA
     Indication: Product used for unknown indication
     Dosage: 36.25/145MG, 2 CAPSULES, 5 /DAY
     Route: 048
     Dates: end: 20210401
  2. RYTARY [Suspect]
     Active Substance: CARBIDOPA\LEVODOPA
     Dosage: 48.75/195MG, 2 CAPSULES, 6 /DAY
     Route: 048
     Dates: start: 20210401, end: 20210512
  3. RYTARY [Suspect]
     Active Substance: CARBIDOPA\LEVODOPA
     Dosage: 48.75/195MG 1 CAPSULES, 6 /DAY
     Route: 048
     Dates: start: 20210512, end: 2021
  4. RYTARY [Suspect]
     Active Substance: CARBIDOPA\LEVODOPA
     Dosage: 36.25/145MG, 1 CAPSULES, 6 /DAY
     Route: 048
     Dates: start: 20210512, end: 20210605
  5. RYTARY [Suspect]
     Active Substance: CARBIDOPA\LEVODOPA
     Dosage: 48.75/195MG, 2 CAPSULES, 6 /DAY
     Route: 048
     Dates: start: 2021, end: 2021
  6. RYTARY [Suspect]
     Active Substance: CARBIDOPA\LEVODOPA
     Dosage: 48.75/195MG 1 CAPSULES, 6 /DAY
     Route: 048
     Dates: start: 20210603, end: 20210605

REACTIONS (3)
  - Tremor [Unknown]
  - Insomnia [Unknown]
  - Therapy cessation [Unknown]

NARRATIVE: CASE EVENT DATE: 20210605
